FAERS Safety Report 22157857 (Version 1)
Quarter: 2023Q1

REPORT INFORMATION
  Report Type: Spontaneous
  Country: HR (occurrence: None)
  Receive Date: 20230330
  Receipt Date: 20230330
  Transmission Date: 20230418
  Serious: Yes (Other)
  Sender: FDA-Public Use
  Company Number: 2023A069880

PATIENT
  Sex: Female

DRUGS (4)
  1. QUETIAPINE FUMARATE [Suspect]
     Active Substance: QUETIAPINE FUMARATE
     Route: 048
     Dates: start: 20230206, end: 20230206
  2. MIRTAZAPINE [Suspect]
     Active Substance: MIRTAZAPINE
     Dates: start: 20230206, end: 20230206
  3. RISPERIDONE [Suspect]
     Active Substance: RISPERIDONE
     Dates: start: 20230206, end: 20230206
  4. RIVOTRIL [Suspect]
     Active Substance: CLONAZEPAM
     Dates: start: 20230206, end: 20230206

REACTIONS (4)
  - Intentional overdose [Unknown]
  - Suicide attempt [Unknown]
  - Unresponsive to stimuli [Unknown]
  - Hypotension [Unknown]

NARRATIVE: CASE EVENT DATE: 20230206
